FAERS Safety Report 7671054-4 (Version None)
Quarter: 2011Q3

REPORT INFORMATION
  Report Type: 
  Country: None (occurrence: None)
  Receive Date: 20110803
  Receipt Date: 20110722
  Transmission Date: 20111222
  Serious: Yes (Death)
  Sender: FDA-Public Use
  Company Number: FK201101444

PATIENT
  Age: 37 Year
  Sex: Female

DRUGS (1)
  1. PROPOFOL [Suspect]
     Indication: SEDATIVE THERAPY
     Dosage: 25-80 UG/KG/MIN, INTRAVENOUS (NOT OTHERWISE SPECIFIED)
     Route: 042

REACTIONS (15)
  - RENAL FAILURE ACUTE [None]
  - HAEMODYNAMIC INSTABILITY [None]
  - RHABDOMYOLYSIS [None]
  - PULSELESS ELECTRICAL ACTIVITY [None]
  - SEPSIS [None]
  - CEREBRAL INFARCTION [None]
  - TACHYCARDIA [None]
  - TRANSAMINASES INCREASED [None]
  - CARDIAC ARREST [None]
  - WHITE BLOOD CELL COUNT DECREASED [None]
  - DRUG RESISTANCE [None]
  - STAPHYLOCOCCUS TEST POSITIVE [None]
  - HYPOTENSION [None]
  - LACTIC ACIDOSIS [None]
  - PROPOFOL INFUSION SYNDROME [None]
